FAERS Safety Report 13110713 (Version 2)
Quarter: 2017Q1

REPORT INFORMATION
  Report Type: Spontaneous
  Country: US (occurrence: US)
  Receive Date: 20170112
  Receipt Date: 20170324
  Transmission Date: 20170428
  Serious: Yes (Other)
  Sender: FDA-Public Use
  Company Number: US-BAYER-2017-006283

PATIENT
  Age: 63 Year
  Sex: Female

DRUGS (6)
  1. TOPAMAX [Concomitant]
     Active Substance: TOPIRAMATE
     Indication: HYPOAESTHESIA
     Dosage: UNK
  2. AMBIEN [Concomitant]
     Active Substance: ZOLPIDEM TARTRATE
     Dosage: 5 MG, UNK
  3. CIPRO [Suspect]
     Active Substance: CIPROFLOXACIN HYDROCHLORIDE
     Indication: ENDOMETRITIS
     Dosage: 500 MG, BID
     Dates: start: 20161222, end: 20161231
  4. TOPAMAX [Concomitant]
     Active Substance: TOPIRAMATE
     Indication: PARAESTHESIA
  5. ROBAXIN [Concomitant]
     Active Substance: METHOCARBAMOL
     Indication: MUSCLE RELAXANT THERAPY
     Dosage: UNK
  6. CIPRO [Suspect]
     Active Substance: CIPROFLOXACIN HYDROCHLORIDE
     Indication: ENDOMETRITIS
     Dosage: 500 MG, BID
     Dates: start: 20170105, end: 201701

REACTIONS (12)
  - Back pain [Recovering/Resolving]
  - Chest pain [Recovering/Resolving]
  - Joint dislocation [Recovering/Resolving]
  - Pain [Recovering/Resolving]
  - Arthralgia [None]
  - Asthenia [Recovering/Resolving]
  - Tendonitis [Recovering/Resolving]
  - Pain [None]
  - Gait disturbance [None]
  - Mobility decreased [Recovering/Resolving]
  - Walking aid user [Recovering/Resolving]
  - Abasia [Recovering/Resolving]

NARRATIVE: CASE EVENT DATE: 20170107
